FAERS Safety Report 10549120 (Version 2)
Quarter: 2015Q2

REPORT INFORMATION
  Report Type: Report from Study
  Country: US (occurrence: US)
  Receive Date: 20141028
  Receipt Date: 20150501
  Transmission Date: 20150821
  Serious: Yes (Hospitalization, Other)
  Sender: FDA-Public Use
  Company Number: US-GILEAD-2014-0119704

PATIENT
  Age: 66 Year
  Sex: Female

DRUGS (17)
  1. MEGACE [Concomitant]
     Active Substance: MEGESTROL ACETATE
  2. SYSTANE (HYPROMELLOSE 2910 (4000 MPA.S)) [Concomitant]
     Active Substance: HYPROMELLOSE 2910 (4000 MPA.S)
  3. PRAVASTATIN [Concomitant]
     Active Substance: PRAVASTATIN\PRAVASTATIN SODIUM
  4. ZETIA [Concomitant]
     Active Substance: EZETIMIBE
  5. COMBIGAN [Concomitant]
     Active Substance: BRIMONIDINE TARTRATE\TIMOLOL MALEATE
  6. VERAPAMIL [Concomitant]
     Active Substance: VERAPAMIL HYDROCHLORIDE
  7. REMODULIN [Concomitant]
     Active Substance: TREPROSTINIL
  8. NEXIUM [Concomitant]
     Active Substance: ESOMEPRAZOLE MAGNESIUM
  9. DIGOXIN. [Concomitant]
     Active Substance: DIGOXIN
  10. AMBRISENTAN [Suspect]
     Active Substance: AMBRISENTAN
     Indication: SCLERODERMA
  11. AMBRISENTAN [Suspect]
     Active Substance: AMBRISENTAN
     Indication: PULMONARY HYPERTENSION
     Dosage: 10 MG, QD
     Route: 065
     Dates: start: 20120130
  12. MIDODRINE [Concomitant]
     Active Substance: MIDODRINE
  13. LOPERAMIDE [Concomitant]
     Active Substance: LOPERAMIDE
  14. TOPROL XL [Concomitant]
     Active Substance: METOPROLOL SUCCINATE
  15. RENVELA [Concomitant]
     Active Substance: SEVELAMER CARBONATE
  16. SENSIPAR [Concomitant]
     Active Substance: CINACALCET HYDROCHLORIDE
  17. ZEMPLAR [Concomitant]
     Active Substance: PARICALCITOL

REACTIONS (1)
  - Lower gastrointestinal haemorrhage [Unknown]
